FAERS Safety Report 9014575 (Version 1)
Quarter: 2013Q1

REPORT INFORMATION
  Report Type: Spontaneous
  Country: US (occurrence: US)
  Receive Date: 20130115
  Receipt Date: 20130115
  Transmission Date: 20140127
  Serious: No
  Sender: FDA-Public Use
  Company Number: US-NOVEN-12US005533

PATIENT
  Sex: Female

DRUGS (2)
  1. FENTANYL [Suspect]
     Indication: PAIN
     Dosage: 100 UG/HR, Q 3DAYS
     Route: 062
     Dates: start: 2012
  2. FENTANYL [Suspect]
     Dosage: 100 UG/HR, Q 3DAYS
     Route: 062

REACTIONS (4)
  - Withdrawal syndrome [Not Recovered/Not Resolved]
  - Middle insomnia [Not Recovered/Not Resolved]
  - Drug administration error [Not Recovered/Not Resolved]
  - Product quality issue [Not Recovered/Not Resolved]
